FAERS Safety Report 14851533 (Version 1)
Quarter: 2018Q2

REPORT INFORMATION
  Report Type: Spontaneous
  Country: US (occurrence: US)
  Receive Date: 20180507
  Receipt Date: 20180507
  Transmission Date: 20180711
  Serious: Yes (Other)
  Sender: FDA-Public Use
  Company Number: US-ASTELLAS-2018US020504

PATIENT
  Age: 59 Year
  Sex: Female

DRUGS (3)
  1. TACROLIMUS. [Suspect]
     Active Substance: TACROLIMUS
     Indication: RENAL TRANSPLANT
     Dosage: UNK, UNKNOWN FREQ.
     Route: 065
  2. MYCOPHENOLATE MOFETIL. [Concomitant]
     Active Substance: MYCOPHENOLATE MOFETIL
     Indication: RENAL TRANSPLANT
     Dosage: UNK UNK, UNKNOWN FREQ.
     Route: 065
  3. PREDNISONE. [Concomitant]
     Active Substance: PREDNISONE
     Indication: RENAL TRANSPLANT
     Dosage: UNK UNK, UNKNOWN FREQ.
     Route: 065

REACTIONS (10)
  - Acanthamoeba infection [Recovering/Resolving]
  - Endophthalmitis [Not Recovered/Not Resolved]
  - Dermatitis [Unknown]
  - Disease progression [Recovering/Resolving]
  - Staphylococcal infection [Unknown]
  - Stenotrophomonas infection [Unknown]
  - Upper-airway cough syndrome [Unknown]
  - Night sweats [Unknown]
  - Mucosal ulceration [Unknown]
  - Nasal congestion [Unknown]
